FAERS Safety Report 21119820 (Version 1)
Quarter: 2022Q3

REPORT INFORMATION
  Report Type: Spontaneous
  Country: US (occurrence: US)
  Receive Date: 20220722
  Receipt Date: 20220722
  Transmission Date: 20221027
  Serious: No
  Sender: FDA-Public Use
  Company Number: US-BAYER-2022A095728

PATIENT
  Age: 72 Year
  Sex: Female

DRUGS (2)
  1. KERENDIA [Suspect]
     Active Substance: FINERENONE
     Dosage: 10MG
  2. KERENDIA [Suspect]
     Active Substance: FINERENONE
     Dosage: 10 MG, QOD
     Dates: start: 2022

REACTIONS (2)
  - Glomerular filtration rate decreased [Recovering/Resolving]
  - Off label use [None]

NARRATIVE: CASE EVENT DATE: 20220101
